FAERS Safety Report 12349960 (Version 1)
Quarter: 2016Q2

REPORT INFORMATION
  Report Type: Spontaneous
  Country: US (occurrence: None)
  Receive Date: 20160509
  Receipt Date: 20160509
  Transmission Date: 20160815
  Serious: Yes (Life-Threatening, Disabling, Other)
  Sender: FDA-Public Use
  Company Number: None

PATIENT
  Age: 55 Year
  Sex: Male
  Weight: 80.74 kg

DRUGS (8)
  1. REXULTI [Suspect]
     Active Substance: BREXPIPRAZOLE
     Indication: DEPRESSION
     Dosage: 14 TABLET(S) AT BEDTIME TAKEN BY MOUTH
     Route: 048
     Dates: start: 20160316, end: 20160318
  2. CLONIDINE. [Concomitant]
     Active Substance: CLONIDINE
  3. REXULTI [Suspect]
     Active Substance: BREXPIPRAZOLE
     Indication: IRRITABILITY
     Dosage: 14 TABLET(S) AT BEDTIME TAKEN BY MOUTH
     Route: 048
     Dates: start: 20160316, end: 20160318
  4. TYLENOL [Concomitant]
     Active Substance: ACETAMINOPHEN
  5. XANAX [Concomitant]
     Active Substance: ALPRAZOLAM
  6. LOPRESSOR [Concomitant]
     Active Substance: METOPROLOL TARTRATE
  7. IBUPROFEN. [Concomitant]
     Active Substance: IBUPROFEN
  8. VITAMIN SUPPLEMENTS [Concomitant]
     Active Substance: VITAMINS

REACTIONS (13)
  - Paranoia [None]
  - Food interaction [None]
  - Myalgia [None]
  - Bone pain [None]
  - Arthralgia [None]
  - Psychiatric symptom [None]
  - Anger [None]
  - Asthenia [None]
  - Headache [None]
  - Cardiac disorder [None]
  - Disease recurrence [None]
  - Dyspnoea [None]
  - Alcoholism [None]

NARRATIVE: CASE EVENT DATE: 20160316
